FAERS Safety Report 8549492-7 (Version None)
Quarter: 2012Q3

REPORT INFORMATION
  Report Type: 
  Country: None (occurrence: None)
  Receive Date: 20120730
  Receipt Date: 20120719
  Transmission Date: 20120928
  Serious: Yes (Other)
  Sender: FDA-Public Use
  Company Number: CN-ASTRAZENECA-2012SE51855

PATIENT
  Age: 5 Year
  Sex: Male
  Weight: 22 kg

DRUGS (3)
  1. NASONEX [Concomitant]
     Indication: RHINITIS ALLERGIC
     Dosage: 50-100 UG DAILY
     Route: 055
     Dates: start: 20071201, end: 20100920
  2. FLUTICASONE PROPIONATE [Suspect]
     Indication: ASTHMA
     Dosage: 125 -250 UG DAILY
     Route: 055
     Dates: start: 20100401, end: 20100920
  3. PULMICORT [Suspect]
     Indication: ASTHMA
     Route: 055
     Dates: start: 20071201, end: 20100401

REACTIONS (1)
  - OSTEONECROSIS [None]
